FAERS Safety Report 9290757 (Version 3)
Quarter: 2014Q1

REPORT INFORMATION
  Report Type: Report from Study
  Country: AU (occurrence: AU)
  Receive Date: 20130515
  Receipt Date: 20140328
  Transmission Date: 20141002
  Serious: Yes (Hospitalization)
  Sender: FDA-Public Use
  Company Number: PHHO2013AU006283

PATIENT
  Age: 70 Year
  Sex: Male
  Weight: 94.1 kg

DRUGS (4)
  1. TIOTROPIUM [Suspect]
     Indication: CHRONIC OBSTRUCTIVE PULMONARY DISEASE
     Route: 055
     Dates: start: 20130318
  2. RAMIPRIL [Suspect]
     Indication: HYPERTENSION
     Dosage: 5 MG, QD
     Route: 048
     Dates: start: 20030919
  3. SERETIDE [Concomitant]
     Dosage: 500/50 ?G B.I.D
  4. DILANTIN [Concomitant]
     Indication: EPILEPSY
     Dosage: 100 MG, QD
     Route: 048

REACTIONS (2)
  - Fall [Recovering/Resolving]
  - Cellulitis [Recovering/Resolving]
